FAERS Safety Report 16594244 (Version 13)
Quarter: 2022Q3

REPORT INFORMATION
  Report Type: Spontaneous
  Country: US (occurrence: US)
  Receive Date: 20190718
  Receipt Date: 20220825
  Transmission Date: 20221027
  Serious: Yes (Other)
  Sender: FDA-Public Use
  Company Number: US-PFIZER INC-2019000645

PATIENT
  Age: 18 Year
  Sex: Female
  Weight: 81.633 kg

DRUGS (7)
  1. DILANTIN [Suspect]
     Active Substance: PHENYTOIN
     Indication: Partial seizures
     Dosage: 200 MG, DAILY
     Route: 048
     Dates: start: 1997
  2. DILANTIN [Suspect]
     Active Substance: PHENYTOIN
     Indication: Focal dyscognitive seizures
     Dosage: 200 MG, 2X/DAY
     Route: 048
  3. DILANTIN [Suspect]
     Active Substance: PHENYTOIN
     Indication: Epilepsy
     Dosage: 200 MG, 1X/DAY
     Route: 048
     Dates: start: 20190710
  4. DILANTIN [Suspect]
     Active Substance: PHENYTOIN
     Indication: Generalised tonic-clonic seizure
     Dosage: 200 MG, 1X/DAY
     Route: 048
     Dates: start: 20201210
  5. DILANTIN [Suspect]
     Active Substance: PHENYTOIN
     Indication: Injury
  6. DILANTIN [Suspect]
     Active Substance: PHENYTOIN
     Indication: Seizure
  7. CHOLECALCIFEROL [Concomitant]
     Active Substance: CHOLECALCIFEROL
     Indication: Artificial menopause
     Dosage: UNK
     Dates: start: 2007

REACTIONS (10)
  - Cerebral disorder [Unknown]
  - Photosensitivity reaction [Recovered/Resolved]
  - Rash [Recovered/Resolved]
  - Blister [Recovered/Resolved]
  - Somnolence [Not Recovered/Not Resolved]
  - Nausea [Not Recovered/Not Resolved]
  - Feeling abnormal [Not Recovered/Not Resolved]
  - Nervous system disorder [Unknown]
  - Memory impairment [Unknown]
  - Intentional product use issue [Unknown]

NARRATIVE: CASE EVENT DATE: 19980101
